FAERS Safety Report 23361684 (Version 1)
Quarter: 2024Q1

REPORT INFORMATION
  Report Type: Spontaneous
  Country: CH (occurrence: CH)
  Receive Date: 20240103
  Receipt Date: 20240103
  Transmission Date: 20240410
  Serious: Yes (Hospitalization, Other)
  Sender: FDA-Public Use
  Company Number: None

PATIENT
  Age: 96 Year
  Sex: Male
  Weight: 70.3 kg

DRUGS (27)
  1. ALDACTONE [Suspect]
     Active Substance: SPIRONOLACTONE
     Dosage: 12.5 MG, 1X/DAY
     Route: 048
     Dates: end: 20231120
  2. IRBESARTAN [Suspect]
     Active Substance: IRBESARTAN
     Dosage: 150 MG, 1X/DAY
     Route: 048
     Dates: end: 20231120
  3. ZOLPIDEM TARTRATE [Suspect]
     Active Substance: ZOLPIDEM TARTRATE
     Dosage: 10 MG, AS NEEDED
  4. ZOLPIDEM TARTRATE [Suspect]
     Active Substance: ZOLPIDEM TARTRATE
     Dosage: 10 MG
     Dates: start: 20231122, end: 20231122
  5. ZOLPIDEM TARTRATE [Suspect]
     Active Substance: ZOLPIDEM TARTRATE
     Dosage: 10 MG, SHORTLY AFTER MIDNIGHT
     Dates: start: 20231126, end: 20231126
  6. ZOLPIDEM TARTRATE [Suspect]
     Active Substance: ZOLPIDEM TARTRATE
     Dosage: 10 MG
     Dates: start: 20231126, end: 20231126
  7. TORSEMIDE [Suspect]
     Active Substance: TORSEMIDE
     Dosage: 10 MG, 1X/DAY
     Route: 048
     Dates: end: 20231120
  8. ELIQUIS [Concomitant]
     Active Substance: APIXABAN
     Dosage: 2.5 MG, 2X/DAY
     Route: 048
  9. EUTHYROX [Concomitant]
     Active Substance: LEVOTHYROXINE SODIUM
     Dosage: 25 UG, 1X/DAY
     Route: 048
  10. DUTASTERIDE\TAMSULOSIN [Concomitant]
     Active Substance: DUTASTERIDE\TAMSULOSIN
     Dosage: 0.5/0.4 MG, 1X/DAY
     Route: 048
  11. MIRABEGRON [Concomitant]
     Active Substance: MIRABEGRON
     Dosage: 50 MG, 1X/DAY
     Route: 048
  12. PRAVASTATIN [Concomitant]
     Active Substance: PRAVASTATIN
     Dosage: 40 MG, 1X/DAY
     Dates: end: 20231121
  13. MAGNESIUM DIASPORAL [MAGNESIUM CITRATE] [Concomitant]
     Dosage: 150 MG (0.5 SACHET), 1X/DAY
  14. ROSUVASTATIN CALCIUM [Concomitant]
     Active Substance: ROSUVASTATIN CALCIUM
     Dosage: 5 MG, 1X/DAY
     Route: 048
     Dates: start: 20231121
  15. DAFALGAN [Concomitant]
     Active Substance: ACETAMINOPHEN
     Dosage: 500 MG, 3X/DAY
     Route: 048
     Dates: start: 20231124
  16. ATROVENT [Concomitant]
     Active Substance: IPRATROPIUM BROMIDE
     Dosage: 0.25 MG/2 ML, 4X/DAY
     Route: 055
     Dates: start: 20231123
  17. SALBUTAMOL-RATIOPHARM N [Concomitant]
     Dosage: 1.25 MG/2.5 ML, 4X/DAY
     Route: 055
     Dates: start: 20231123
  18. LACRI VISION [HYALURONATE SODIUM] [Concomitant]
     Dosage: UNK, 3X/DAY
     Route: 057
     Dates: start: 20231121
  19. DOMPERIDONE [Concomitant]
     Active Substance: DOMPERIDONE
     Dosage: UNK, AS NEEDED
     Dates: start: 20231120, end: 20231127
  20. LAXIPEG [Concomitant]
     Dosage: 10 G, AS NEEDED
     Dates: start: 20231120, end: 20231127
  21. VALVERDE SCHLAF [Concomitant]
     Dosage: UNK, AS NEEDED
     Route: 048
     Dates: start: 20231120
  22. METAMIZOLE [Concomitant]
     Active Substance: METAMIZOLE
     Dosage: 500 MG, AS NEEDED
     Route: 048
     Dates: start: 20231121
  23. RINGER ACETAT [CALCIUM ACETATE;MAGNESIUM ACETATE;POTASSIUM ACETATE;SOD [Concomitant]
     Dosage: UNK
     Route: 041
     Dates: start: 20231120, end: 20231121
  24. NACL B.BRAUN [Concomitant]
     Dosage: UNK
     Route: 041
     Dates: start: 20231123, end: 20231123
  25. RINGER-LACTATE SOLUTION [Concomitant]
     Dosage: UNK
     Route: 041
     Dates: start: 20231121, end: 20231123
  26. ACETAMINOPHEN [Concomitant]
     Active Substance: ACETAMINOPHEN
     Dosage: UNK
     Route: 041
     Dates: start: 20231123, end: 20231124
  27. SODIUM CHLORIDE [Concomitant]
     Active Substance: SODIUM CHLORIDE
     Dosage: UNK
     Route: 041
     Dates: start: 20231123, end: 20231127

REACTIONS (7)
  - COVID-19 [Unknown]
  - Acute respiratory failure [Unknown]
  - Lower respiratory tract infection [Unknown]
  - Hyperkalaemia [Recovered/Resolved]
  - Fall [Recovered/Resolved]
  - Dehydration [Unknown]
  - Chronic kidney disease [Unknown]

NARRATIVE: CASE EVENT DATE: 20231118
